FAERS Safety Report 25209878 (Version 2)
Quarter: 2025Q3

REPORT INFORMATION
  Report Type: Spontaneous
  Country: EU (occurrence: EU)
  Receive Date: 20250417
  Receipt Date: 20250902
  Transmission Date: 20251020
  Serious: Yes (Other)
  Sender: INCYTE
  Company Number: EU-INCYTE CORPORATION-2025IN004042

PATIENT
  Age: 77 Year

DRUGS (19)
  1. TAFASITAMAB [Suspect]
     Active Substance: TAFASITAMAB
     Indication: Diffuse large B-cell lymphoma
  2. LENALIDOMIDE [Concomitant]
     Active Substance: LENALIDOMIDE
     Indication: Diffuse large B-cell lymphoma
     Route: 065
  3. ENTECAVIR [Concomitant]
     Active Substance: ENTECAVIR
     Indication: Product used for unknown indication
     Route: 065
  4. AZITHROMYCIN [Concomitant]
     Active Substance: AZITHROMYCIN
     Indication: Product used for unknown indication
     Route: 065
  5. FRAGMIN [Concomitant]
     Active Substance: DALTEPARIN SODIUM
     Indication: Product used for unknown indication
     Route: 065
  6. DEXAMETHASONE [Concomitant]
     Active Substance: DEXAMETHASONE
     Indication: Product used for unknown indication
     Route: 065
  7. FELKARID [Concomitant]
     Indication: Product used for unknown indication
     Route: 065
  8. CHOLECALCIFEROL [Concomitant]
     Active Substance: CHOLECALCIFEROL
     Indication: Product used for unknown indication
     Route: 065
  9. MAGNESIUM CITRATE [Concomitant]
     Active Substance: MAGNESIUM CITRATE
     Indication: Product used for unknown indication
     Route: 065
  10. METAMIZOLE SODIUM [Concomitant]
     Active Substance: METAMIZOLE SODIUM
     Indication: Product used for unknown indication
     Route: 065
  11. PANTOPRAZOLE SODIUM [Concomitant]
     Active Substance: PANTOPRAZOLE SODIUM
     Indication: Product used for unknown indication
     Route: 065
  12. EUTHYROX [Concomitant]
     Active Substance: LEVOTHYROXINE SODIUM
     Indication: Product used for unknown indication
     Route: 065
  13. ACETAMINOPHEN\TRAMADOL HYDROCHLORIDE [Concomitant]
     Active Substance: ACETAMINOPHEN\TRAMADOL HYDROCHLORIDE
     Indication: Product used for unknown indication
     Route: 065
  14. CRESTOR [Concomitant]
     Active Substance: ROSUVASTATIN CALCIUM
     Indication: Product used for unknown indication
     Route: 065
  15. SODIUM PHOSPHATE [Concomitant]
     Active Substance: SODIUM PHOSPHATE
     Indication: Product used for unknown indication
     Route: 065
  16. REGLAN [Concomitant]
     Active Substance: METOCLOPRAMIDE HYDROCHLORIDE
     Indication: Product used for unknown indication
     Route: 065
  17. FUROSEMIDE [Concomitant]
     Active Substance: FUROSEMIDE
     Indication: Product used for unknown indication
     Route: 065
  18. BISOPROLOL FUMARATE [Concomitant]
     Active Substance: BISOPROLOL FUMARATE
     Indication: Product used for unknown indication
     Route: 065
  19. PROREKTAL [Concomitant]
     Indication: Product used for unknown indication
     Route: 065

REACTIONS (2)
  - Diffuse large B-cell lymphoma [Unknown]
  - Disease progression [Unknown]
